FAERS Safety Report 24109257 (Version 1)
Quarter: 2024Q3

REPORT INFORMATION
  Report Type: Other
  Country: IE (occurrence: IE)
  Receive Date: 20240718
  Receipt Date: 20240718
  Transmission Date: 20241017
  Serious: Yes (Other)
  Sender: APPCO PHARMA
  Company Number: IE-Appco Pharma LLC-2159276

PATIENT
  Age: 41 Year
  Sex: Male

DRUGS (1)
  1. HYDROXYCHLOROQUINE SULFATE [Suspect]
     Active Substance: HYDROXYCHLOROQUINE SULFATE
     Indication: COVID-19 prophylaxis
     Route: 065

REACTIONS (4)
  - Off label use [Unknown]
  - Sarcoidosis of lymph node [Unknown]
  - Condition aggravated [Unknown]
  - Drug withdrawal syndrome [Unknown]
